FAERS Safety Report 8916576 (Version 1)
Quarter: 2012Q4

REPORT INFORMATION
  Report Type: 
  Country: US (occurrence: US)
  Receive Date: 20121120
  Receipt Date: 20121120
  Transmission Date: 20130627
  Serious: No
  Sender: FDA-Public Use
  Company Number: US-009507513-1211USA007088

PATIENT
  Age: 55 Year
  Sex: Male

DRUGS (6)
  1. PEGINTRON [Suspect]
     Indication: HEPATITIS C
     Dosage: 1 DF, qd
     Route: 058
     Dates: start: 2007
  2. PREZISTA [Concomitant]
     Dosage: 600, 2x
  3. ISENTRESS [Concomitant]
     Dosage: 400 x2
  4. NORVIR [Concomitant]
     Dosage: 100 x2
  5. LAMIVUDINE [Concomitant]
     Dosage: 300 x1
  6. VIREAD [Concomitant]
     Dosage: 300 x1

REACTIONS (1)
  - Drug ineffective [Unknown]
